FAERS Safety Report 7286458-1 (Version None)
Quarter: 2011Q1

REPORT INFORMATION
  Report Type: 
  Country: None (occurrence: None)
  Receive Date: 20110210
  Receipt Date: 20110208
  Transmission Date: 20110831
  Serious: Yes (Hospitalization, Other)
  Sender: FDA-Public Use
  Company Number: US-PFIZER INC-2010147182

PATIENT
  Sex: Female

DRUGS (3)
  1. SUTENT [Suspect]
     Dosage: 50 MG, FOR 28 DAYS EVERY 42 DAYS
     Dates: start: 20110110, end: 20110131
  2. SUTENT [Suspect]
     Indication: METASTATIC RENAL CELL CARCINOMA
     Dosage: 50 MG, DAILY FOR 28 DAYS EVERY 42 DAYS
     Route: 048
     Dates: start: 20101011, end: 20101114
  3. SUTENT [Suspect]
     Dosage: 37.5 MG, FOR 28 DAYS EVERY 42 DAYS
     Dates: start: 20101129

REACTIONS (8)
  - FATIGUE [None]
  - DIARRHOEA [None]
  - BLOOD CHOLESTEROL INCREASED [None]
  - DEHYDRATION [None]
  - DYSPNOEA [None]
  - PLATELET COUNT DECREASED [None]
  - THYROID FUNCTION TEST ABNORMAL [None]
  - HEART RATE INCREASED [None]
